FAERS Safety Report 17855971 (Version 1)
Quarter: 2020Q2

REPORT INFORMATION
  Report Type: Spontaneous
  Country: DE (occurrence: DE)
  Receive Date: 20200603
  Receipt Date: 20200603
  Transmission Date: 20200714
  Serious: Yes (Other)
  Sender: FDA-Public Use
  Company Number: DE-MYLANLABS-2020M1053513

PATIENT
  Sex: Male

DRUGS (1)
  1. LEVETIRACETAM. [Suspect]
     Active Substance: LEVETIRACETAM
     Indication: PRODUCT USED FOR UNKNOWN INDICATION
     Dosage: UNK
     Route: 065

REACTIONS (9)
  - Alopecia [Unknown]
  - Cognitive disorder [Unknown]
  - Nausea [Unknown]
  - Mental disorder [Unknown]
  - Erectile dysfunction [Unknown]
  - Gait disturbance [Unknown]
  - Somnolence [Unknown]
  - Diplopia [Unknown]
  - Weight decreased [Unknown]
